FAERS Safety Report 8221267-8 (Version None)
Quarter: 2012Q1

REPORT INFORMATION
  Report Type: 
  Country: None (occurrence: None)
  Receive Date: 20120320
  Receipt Date: 20120313
  Transmission Date: 20120608
  Serious: Yes (Hospitalization, Other)
  Sender: FDA-Public Use
  Company Number: PHEH2006US02520

PATIENT
  Sex: Male
  Weight: 82.54 kg

DRUGS (30)
  1. AREDIA [Suspect]
     Indication: METASTASES TO BONE
     Dates: start: 19990601, end: 20040701
  2. AREDIA [Suspect]
     Indication: MULTIPLE MYELOMA
  3. TYLENOL ARTHRITIS [Concomitant]
     Dosage: 1300 MG, QAM
  4. COUMADIN [Concomitant]
     Dosage: 1 MG, QD
     Route: 048
  5. OXYCODONE HCL [Concomitant]
     Dosage: 5 MG, PRN
  6. VELCADE [Suspect]
     Indication: MULTIPLE MYELOMA
  7. STEROIDS NOS [Concomitant]
  8. DOCUSATE SODIUM [Concomitant]
     Dosage: 100 MG, UNK
  9. NEURONTIN [Concomitant]
     Dosage: 600 MG, QD
  10. INSULIN [Concomitant]
  11. PRILOSEC [Concomitant]
     Dosage: 40 MG, QD
     Route: 048
  12. LASIX [Concomitant]
     Dosage: 40 MG, UNK
  13. BETA BLOCKING AGENTS [Concomitant]
     Indication: BLOOD PRESSURE MANAGEMENT
     Dosage: UNK
     Dates: start: 20070401
  14. CEPHALEXIN [Concomitant]
     Dosage: 500 MG, QD
  15. CYMBALTA [Concomitant]
     Dosage: 60 MG, QD
  16. ALEVE                              /00256202/ [Concomitant]
     Dosage: 220 MG, QD
  17. ZOMETA [Suspect]
     Indication: MULTIPLE MYELOMA
     Route: 042
  18. DEXAMETHASONE [Concomitant]
     Dosage: 4 MG, 10 TABLETS EVERY TUESDAY
  19. NEURONTIN [Concomitant]
     Dosage: 300 MG, QD
  20. AREDIA [Suspect]
     Indication: HYPERCALCAEMIA
  21. OXYCODONE HCL [Concomitant]
     Dosage: 5 MG, PRN
  22. THALOMID [Concomitant]
     Dosage: 100 MG, QPM
     Dates: start: 20030101, end: 20050101
  23. CYMBALTA [Concomitant]
     Dosage: 90 MG, QD
  24. VITAMIN B6 [Concomitant]
     Dosage: 100 MG, QD
  25. COUMADIN [Concomitant]
     Dosage: 1 MG, QD
  26. HUMALOG [Concomitant]
     Dosage: AS DIRECTED DURING STEROIDS
  27. MORPHINE SULFATE [Concomitant]
     Indication: PAIN
  28. MULTI-VITAMINS [Concomitant]
     Dosage: UNK
  29. IRON [Concomitant]
     Dosage: 65 MG, QD
  30. UROXATRAL [Concomitant]
     Dosage: 10 MG, QOD

REACTIONS (55)
  - EMOTIONAL DISTRESS [None]
  - OEDEMA MOUTH [None]
  - DENTAL FISTULA [None]
  - HYPOAESTHESIA ORAL [None]
  - ACTINOMYCOSIS [None]
  - POSTERIOR CAPSULE OPACIFICATION [None]
  - FOREIGN BODY IN EYE [None]
  - PURULENT DISCHARGE [None]
  - INFECTION [None]
  - LUMBAR VERTEBRAL FRACTURE [None]
  - MONOCLONAL GAMMOPATHY [None]
  - EXPOSED BONE IN JAW [None]
  - JAW DISORDER [None]
  - PRIMARY SEQUESTRUM [None]
  - BIOPSY [None]
  - COLONIC POLYP [None]
  - MUSCLE SPASMS [None]
  - STAPHYLOCOCCAL INFECTION [None]
  - CATARACT [None]
  - NEUROPATHY PERIPHERAL [None]
  - CEREBROVASCULAR ACCIDENT [None]
  - INTERVERTEBRAL DISC DEGENERATION [None]
  - ERYTHEMA [None]
  - PAIN [None]
  - PAIN IN JAW [None]
  - OSTEITIS [None]
  - VISION BLURRED [None]
  - ANAEMIA [None]
  - SQUAMOUS CELL CARCINOMA [None]
  - POLYNEUROPATHY [None]
  - OSTEONECROSIS [None]
  - ERECTILE DYSFUNCTION [None]
  - BACTERIAL INFECTION [None]
  - ORAL PAIN [None]
  - OSTEOSCLEROSIS [None]
  - ORAL DISCOMFORT [None]
  - TYPE 2 DIABETES MELLITUS [None]
  - HYPERGLYCAEMIA [None]
  - SCLEROMALACIA [None]
  - ARTHROPATHY [None]
  - INTERVERTEBRAL DISC DISORDER [None]
  - OSTEOMYELITIS [None]
  - OSTEORADIONECROSIS [None]
  - PARESIS [None]
  - IMPAIRED HEALING [None]
  - PARAESTHESIA [None]
  - URETHRAL STENOSIS [None]
  - OSTEONECROSIS OF JAW [None]
  - INJURY [None]
  - MASTICATION DISORDER [None]
  - PATHOLOGICAL FRACTURE [None]
  - VISUAL ACUITY REDUCED [None]
  - GLARE [None]
  - TESTICULAR FAILURE [None]
  - LUMBAR RADICULOPATHY [None]
